FAERS Safety Report 12925740 (Version 1)
Quarter: 2016Q4

REPORT INFORMATION
  Report Type: Spontaneous
  Country: US (occurrence: US)
  Receive Date: 20161108
  Receipt Date: 20161108
  Transmission Date: 20170207
  Serious: No
  Sender: FDA-Public Use
  Company Number: US-SA-2016SA184910

PATIENT
  Age: 53 Year
  Sex: Male

DRUGS (13)
  1. PRALUENT [Suspect]
     Active Substance: ALIROCUMAB
     Route: 058
     Dates: start: 20160712
  2. BACTRIM DS [Concomitant]
     Active Substance: SULFAMETHOXAZOLE\TRIMETHOPRIM
     Dosage: STRENGTH: 800-160
  3. ASPIR [Concomitant]
     Active Substance: ASPIRIN
     Dosage: ASPIR-LOW; STRENGTH: 81 MG EC
  4. CYCLOBENZAPRINE [Concomitant]
     Active Substance: CYCLOBENZAPRINE
     Dosage: STRENGTH: 5 MG
  5. FLUTICASONE [Concomitant]
     Active Substance: FLUTICASONE\FLUTICASONE PROPIONATE
     Dosage: FLUTICASONE SPR 50 MCG
  6. LEVOCETRIZINE [Concomitant]
     Active Substance: LEVOCETIRIZINE
     Dosage: STRENGTH: 5 MG
  7. NAPROXEN. [Concomitant]
     Active Substance: NAPROXEN
     Dosage: STRENGTH: 500 MG
  8. ALIROCUMAB PREFILLED SYRINGE [Concomitant]
     Dates: start: 20160712
  9. NITROSTAT [Concomitant]
     Active Substance: NITROGLYCERIN
     Dosage: NITROSTAT SUB ; STRENGTH: 0.4 MG
  10. VOLTAREN [Concomitant]
     Active Substance: DICLOFENAC SODIUM
     Dosage: VOLTAREN GEL 1%
  11. DOXYCYCLINE. [Concomitant]
     Active Substance: DOXYCYCLINE
     Dosage: DOXYCYC MONO CAP ; STRENGTH:100 MG
  12. ECONAZOLE [Concomitant]
     Active Substance: ECONAZOLE
     Dosage: ECONAZOLE CRE 1%
  13. VENTOLIN [Concomitant]
     Active Substance: ALBUTEROL SULFATE
     Dosage: VENTOLIN HFA AER

REACTIONS (1)
  - Sinusitis [Unknown]
